FAERS Safety Report 14972485 (Version 7)
Quarter: 2018Q4

REPORT INFORMATION
  Report Type: Report from Study
  Country: ES (occurrence: ES)
  Receive Date: 20180605
  Receipt Date: 20181214
  Transmission Date: 20190204
  Serious: Yes (Hospitalization, Other)
  Sender: FDA-Public Use
  Company Number: ES-TEVA-2018-ES-902124

PATIENT
  Age: 23 Year
  Sex: Male

DRUGS (14)
  1. GENOXAL [Suspect]
     Active Substance: CYCLOPHOSPHAMIDE
     Indication: ACUTE LYMPHOCYTIC LEUKAEMIA
     Dosage: REGIMEN #1, CONDITIONING REGIMEN
     Route: 065
     Dates: start: 20130823
  2. ARA-C [Suspect]
     Active Substance: CYTARABINE
     Route: 051
  3. METHOTREXATE SODIUM. [Suspect]
     Active Substance: METHOTREXATE SODIUM
     Dosage: MAINTENANCE TREATMENT, REGIMEN #2,
     Route: 065
     Dates: start: 20131023
  4. METHOTREXATE SODIUM. [Suspect]
     Active Substance: METHOTREXATE SODIUM
     Dosage: UNK UNK,QCY
     Route: 065
     Dates: start: 20130325, end: 20130725
  5. ARA-C [Suspect]
     Active Substance: CYTARABINE
     Indication: ACUTE LYMPHOCYTIC LEUKAEMIA
     Dosage: CONSOLIDATION TREATMENT, REGIMEN #1, AT HIGH DOSE
     Route: 065
     Dates: start: 20130325, end: 20130725
  6. IMATINIB. [Suspect]
     Active Substance: IMATINIB MESYLATE
     Dosage: 600 MILLIGRAM DAILY; MAINTENANCE TREATMENT, REGIMEN #3
     Route: 065
     Dates: start: 20131022
  7. PREDNISONE. [Suspect]
     Active Substance: PREDNISONE
     Indication: ACUTE LYMPHOCYTIC LEUKAEMIA
     Dosage: INDUCTION TREATMENT, REGIMEN #1,
     Route: 065
     Dates: start: 20130212
  8. DAUNORUBICIN HYDROCHLORIDE. [Suspect]
     Active Substance: DAUNORUBICIN HYDROCHLORIDE
     Indication: ACUTE LYMPHOCYTIC LEUKAEMIA
     Dosage: INDUCTION TREATMENT
     Route: 065
     Dates: start: 20130212
  9. IMATINIB. [Suspect]
     Active Substance: IMATINIB MESYLATE
     Dosage: 600 MILLIGRAM DAILY; INDUCTION TREATMENT REGIMEN #1
     Route: 065
     Dates: start: 20130212
  10. METHOTREXATE SODIUM. [Suspect]
     Active Substance: METHOTREXATE SODIUM
     Indication: ACUTE LYMPHOCYTIC LEUKAEMIA
     Dosage: CONSOLIDATION TREATMENT, REGIMEN #1, AT HIGH DOSE
     Route: 065
     Dates: start: 20130323, end: 20130725
  11. VINCRISTINE [Suspect]
     Active Substance: VINCRISTINE
     Indication: ACUTE LYMPHOCYTIC LEUKAEMIA
     Dosage: INDUCTION TREATMENT
     Route: 065
     Dates: start: 20130212
  12. MERCAPTOPURINE. [Suspect]
     Active Substance: MERCAPTOPURINE
     Indication: ACUTE LYMPHOCYTIC LEUKAEMIA
     Dosage: MAINTENANCE TREATMENT, REGIMEN #1,
     Route: 065
     Dates: start: 20131022
  13. IMATINIB. [Suspect]
     Active Substance: IMATINIB MESYLATE
     Indication: ACUTE LYMPHOCYTIC LEUKAEMIA
     Dosage: 600 MILLIGRAM DAILY; CONSOLIDATION TREATMENT, REGIMEN #2
     Route: 065
     Dates: start: 20130325, end: 20130725
  14. METHOTREXATE SODIUM. [Suspect]
     Active Substance: METHOTREXATE SODIUM
     Dosage: MAINTENANCE TREATMENT, REGIMEN #2,
     Route: 065
     Dates: start: 20131022

REACTIONS (3)
  - Acute lymphocytic leukaemia recurrent [Unknown]
  - Pyrexia [Unknown]
  - Musculoskeletal chest pain [Unknown]

NARRATIVE: CASE EVENT DATE: 20140415
